FAERS Safety Report 9652986 (Version 1)
Quarter: 2013Q4

REPORT INFORMATION
  Report Type: Spontaneous
  Country: US (occurrence: US)
  Receive Date: 20131029
  Receipt Date: 20131029
  Transmission Date: 20140711
  Serious: No
  Sender: FDA-Public Use
  Company Number: US-BIOGENIDEC-2013BI078096

PATIENT
  Age: 62 Year
  Sex: Female

DRUGS (7)
  1. TECFIDERA [Suspect]
     Indication: MULTIPLE SCLEROSIS
     Route: 048
     Dates: start: 20130619
  2. ATENOLOL [Concomitant]
  3. BACLOFEN [Concomitant]
  4. FLEXERIL [Concomitant]
  5. IBUPROFEN [Concomitant]
  6. LORAZEPAM [Concomitant]
  7. METFORMIN HCL [Concomitant]

REACTIONS (1)
  - Abdominal distension [Unknown]
